FAERS Safety Report 18052171 (Version 1)
Quarter: 2020Q3

REPORT INFORMATION
  Report Type: Spontaneous
  Country: GB (occurrence: GB)
  Receive Date: 20200721
  Receipt Date: 20200721
  Transmission Date: 20201103
  Serious: Yes (Other)
  Sender: FDA-Public Use
  Company Number: GB-ASCEND THERAPEUTICS US, LLC-2087581

PATIENT
  Age: 47 Year
  Sex: Female
  Weight: 60 kg

DRUGS (3)
  1. ESTROGEL [Suspect]
     Active Substance: ESTRADIOL
     Indication: HORMONE REPLACEMENT THERAPY
     Route: 062
     Dates: start: 20190520
  2. OESTRODOSE (ESTRADIOL), UNKNOWN [Suspect]
     Active Substance: ESTRADIOL
     Route: 062
     Dates: start: 20190520
  3. ESTROGEL [Suspect]
     Active Substance: ESTRADIOL

REACTIONS (8)
  - Fatigue [Unknown]
  - Postmenopausal haemorrhage [Unknown]
  - Breast tenderness [Unknown]
  - Product substitution issue [Unknown]
  - Anxiety [Unknown]
  - Insomnia [Unknown]
  - Breast pain [Not Recovered/Not Resolved]
  - Drug ineffective [Unknown]

NARRATIVE: CASE EVENT DATE: 20200624
